FAERS Safety Report 6397313-3 (Version None)
Quarter: 2009Q4

REPORT INFORMATION
  Report Type: 
  Country: None (occurrence: None)
  Receive Date: 20091012
  Receipt Date: 20091001
  Transmission Date: 20100525
  Serious: Yes (Hospitalization)
  Sender: FDA-Public Use
  Company Number: DE-SANOFI-SYNTHELABO-A01200908376

PATIENT
  Age: 83 Year
  Sex: Male
  Weight: 67 kg

DRUGS (2)
  1. ISCOVER [Suspect]
     Indication: STENT PLACEMENT
     Route: 048
     Dates: start: 20090501, end: 20090901
  2. ACETYLSALICYLIC ACID [Concomitant]
     Indication: DRUG USE FOR UNKNOWN INDICATION
     Dosage: UNK
     Route: 065

REACTIONS (3)
  - DECREASED APPETITE [None]
  - FATIGUE [None]
  - WEIGHT DECREASED [None]
